FAERS Safety Report 4886349-7 (Version None)
Quarter: 2006Q1

REPORT INFORMATION
  Report Type: 
  Country: None (occurrence: None)
  Receive Date: 20060118
  Receipt Date: 20060105
  Transmission Date: 20060701
  Serious: Yes (Other)
  Sender: FDA-Public Use
  Company Number: 2006005768

PATIENT
  Sex: Male
  Weight: 109.7705 kg

DRUGS (4)
  1. CELEBREX [Suspect]
     Indication: ARTHRALGIA
     Dosage: 200 MG (200 MG, 1 IN 1 D); UNKNOWN
  2. ZOCOR [Suspect]
     Indication: BLOOD CHOLESTEROL INCREASED
  3. TENORMIN [Concomitant]
  4. LOPRESSOR [Concomitant]

REACTIONS (5)
  - ARTHROPATHY [None]
  - BLADDER DISORDER [None]
  - MYALGIA [None]
  - PROSTATIC SPECIFIC ANTIGEN DECREASED [None]
  - SLEEP DISORDER [None]
